FAERS Safety Report 9572837 (Version 1)
Quarter: 2013Q4

REPORT INFORMATION
  Report Type: Spontaneous
  Country: CA (occurrence: CA)
  Receive Date: 20131001
  Receipt Date: 20131001
  Transmission Date: 20140711
  Serious: Yes (Other)
  Sender: FDA-Public Use
  Company Number: CA-ROCHE-1283446

PATIENT
  Sex: Male

DRUGS (4)
  1. XOLAIR [Suspect]
     Indication: ASTHMA
     Route: 058
     Dates: start: 20130125
  2. PULMICORT [Concomitant]
  3. BIAXIN (CANADA) [Concomitant]
  4. VENTOLIN [Concomitant]

REACTIONS (2)
  - Chest pain [Unknown]
  - Heart rate decreased [Unknown]
